FAERS Safety Report 6827357-6 (Version None)
Quarter: 2010Q3

REPORT INFORMATION
  Report Type: 
  Country: None (occurrence: None)
  Receive Date: 20100709
  Receipt Date: 20070110
  Transmission Date: 20110219
  Serious: No
  Sender: FDA-Public Use
  Company Number: US-PFIZER INC-2007003998

PATIENT
  Sex: Female
  Weight: 38.56 kg

DRUGS (7)
  1. CHANTIX [Suspect]
     Indication: SMOKING CESSATION THERAPY
     Dates: start: 20070104
  2. MONTELUKAST SODIUM [Concomitant]
  3. NORTRIPTYLINE [Concomitant]
  4. XANAX [Concomitant]
  5. ADVAIR DISKUS 100/50 [Concomitant]
  6. ALBUTEROL [Concomitant]
     Route: 055
  7. SPIRIVA [Concomitant]

REACTIONS (2)
  - NAUSEA [None]
  - VOMITING [None]
